FAERS Safety Report 22262384 (Version 1)
Quarter: 2023Q2

REPORT INFORMATION
  Report Type: Spontaneous
  Country: IE (occurrence: IE)
  Receive Date: 20230428
  Receipt Date: 20230428
  Transmission Date: 20230721
  Serious: Yes (Other)
  Sender: FDA-Public Use
  Company Number: IE-AstraZeneca-2023A079672

PATIENT
  Age: 47 Year
  Sex: Male

DRUGS (4)
  1. EZETIMIBE [Interacting]
     Active Substance: EZETIMIBE
     Dosage: 10 MILLIGRAM
  2. ROSUVASTATIN CALCIUM [Interacting]
     Active Substance: ROSUVASTATIN CALCIUM
     Dosage: 40 MILLIGRAM
     Route: 048
  3. OLAPARIB [Interacting]
     Active Substance: OLAPARIB
     Dosage: 300 MILLIGRAM, Q12H
     Route: 048
  4. FENOFIBRATE [Interacting]
     Active Substance: FENOFIBRATE
     Dosage: 10 MILLIGRAM

REACTIONS (7)
  - Hypercholesterolaemia [Unknown]
  - Off label use [Unknown]
  - Red blood cell count decreased [Unknown]
  - Drug interaction [Unknown]
  - Anaemia [Unknown]
  - Malignant neoplasm progression [Unknown]
  - Haematocrit decreased [Unknown]
